FAERS Safety Report 21233542 (Version 7)
Quarter: 2022Q3

REPORT INFORMATION
  Report Type: Report from Study
  Country: BR (occurrence: None)
  Receive Date: 20220819
  Receipt Date: 20220915
  Transmission Date: 20221026
  Serious: Yes (Death)
  Sender: FDA-Public Use
  Company Number: BR-ROCHE-3163531

PATIENT
  Age: 81 Year
  Sex: Male
  Weight: 79 kg

DRUGS (11)
  1. ATEZOLIZUMAB [Suspect]
     Active Substance: ATEZOLIZUMAB
     Indication: Metastatic malignant melanoma
     Dosage: START DATE OF MOST RECENT DOSE OF STUDY DRUG PRIOR TO AE 06/MAR/2018
     Route: 041
     Dates: start: 20180306
  2. VEMURAFENIB [Suspect]
     Active Substance: VEMURAFENIB
     Indication: Metastatic malignant melanoma
     Dosage: ON 14/APR/2022 MOST RECENT DOSE OF STUDY DRUG PRIOR TO AE AND SAE.
     Route: 048
     Dates: start: 20180130
  3. COBIMETINIB [Suspect]
     Active Substance: COBIMETINIB
     Indication: Metastatic malignant melanoma
     Dosage: ON 14/APR/2022 MOST RECENT DOSE OF STUDY DRUG PRIOR TO AE AND SAE AT 20 MG
     Route: 048
     Dates: start: 20180130
  4. ATENOLOL [Concomitant]
     Active Substance: ATENOLOL
     Indication: Hypertension
     Route: 048
     Dates: start: 2006
  5. HYDROCHLOROTHIAZIDE [Concomitant]
     Active Substance: HYDROCHLOROTHIAZIDE
     Indication: Hypertension
     Route: 048
     Dates: start: 2013
  6. OMEPRAZOLE [Concomitant]
     Active Substance: OMEPRAZOLE
     Indication: Dyspepsia
     Route: 048
     Dates: start: 20200520
  7. DIPYRONE [Concomitant]
     Active Substance: DIPYRONE
     Indication: Pain in extremity
     Route: 048
     Dates: start: 20201001
  8. HYDROXYZINE HYDROCHLORIDE [Concomitant]
     Active Substance: HYDROXYZINE HYDROCHLORIDE
     Indication: Rash pruritic
     Route: 048
     Dates: start: 20201209
  9. MAGNESIUM CHLORIDE [Concomitant]
     Active Substance: MAGNESIUM CHLORIDE
     Dosage: 1 TABLET
     Route: 048
     Dates: start: 20201101
  10. LORATADINE [Concomitant]
     Active Substance: LORATADINE
     Indication: Pruritus
     Route: 048
     Dates: start: 20210721
  11. VALPROIC ACID [Concomitant]
     Active Substance: VALPROIC ACID
     Indication: Seizure
     Route: 048
     Dates: start: 20210623

REACTIONS (1)
  - Myocardial infarction [Fatal]

NARRATIVE: CASE EVENT DATE: 20220511
